FAERS Safety Report 5369395-9 (Version None)
Quarter: 2007Q2

REPORT INFORMATION
  Report Type: 
  Country: None (occurrence: None)
  Receive Date: 20070625
  Receipt Date: 20070402
  Transmission Date: 20071010
  Serious: No
  Sender: FDA-Public Use
  Company Number: US-ASTRAZENECA-2007UW06548

PATIENT
  Age: 80 Year
  Sex: Female
  Weight: 60.3 kg

DRUGS (3)
  1. CRESTOR [Suspect]
     Indication: BLOOD CHOLESTEROL INCREASED
     Route: 048
     Dates: start: 20070326, end: 20070330
  2. BENICAR [Concomitant]
     Indication: HYPERTENSION
     Route: 048
  3. SYNTHROID [Concomitant]
     Route: 048

REACTIONS (3)
  - INCREASED APPETITE [None]
  - MALAISE [None]
  - MYALGIA [None]
